FAERS Safety Report 21997032 (Version 5)
Quarter: 2023Q2

REPORT INFORMATION
  Report Type: Spontaneous
  Country: JP (occurrence: JP)
  Receive Date: 20230215
  Receipt Date: 20230605
  Transmission Date: 20230722
  Serious: Yes (Disabling, Other)
  Sender: FDA-Public Use
  Company Number: JP-BEH-2023155338

PATIENT
  Age: 71 Year
  Sex: Male
  Weight: 71.6 kg

DRUGS (5)
  1. KCENTRA [Suspect]
     Active Substance: COAGULATION FACTOR IX HUMAN\COAGULATION FACTOR VII HUMAN\COAGULATION FACTOR X HUMAN\PROTEIN C\PROTEI
     Indication: Procoagulant therapy
     Dosage: 1500 INTERNATIONAL UNIT
     Route: 042
     Dates: start: 20201214, end: 20201214
  2. KCENTRA [Suspect]
     Active Substance: COAGULATION FACTOR IX HUMAN\COAGULATION FACTOR VII HUMAN\COAGULATION FACTOR X HUMAN\PROTEIN C\PROTEI
     Indication: Procoagulant therapy
     Dosage: 1500 INTERNATIONAL UNIT
     Route: 042
     Dates: start: 20201214, end: 20201214
  3. WARFARIN [Concomitant]
     Active Substance: WARFARIN
  4. LEVETIRACETAM [Concomitant]
     Active Substance: LEVETIRACETAM
     Indication: Seizure prophylaxis
     Dosage: 500 MILLIGRAM, BID
     Route: 042
     Dates: start: 20201213, end: 20201215
  5. OMEPRAZOLE [Concomitant]
     Active Substance: OMEPRAZOLE
     Indication: Prophylaxis against gastrointestinal ulcer
     Dosage: 20 MILLIGRAM, BID
     Route: 042
     Dates: start: 20201214, end: 20201215

REACTIONS (4)
  - Cerebral infarction [Recovered/Resolved with Sequelae]
  - Altered state of consciousness [Recovered/Resolved with Sequelae]
  - Embolism [Recovered/Resolved with Sequelae]
  - Subdural haematoma [Unknown]

NARRATIVE: CASE EVENT DATE: 20201214
